FAERS Safety Report 14794793 (Version 1)
Quarter: 2018Q2

REPORT INFORMATION
  Report Type: Spontaneous
  Country: US (occurrence: US)
  Receive Date: 20180423
  Receipt Date: 20180423
  Transmission Date: 20180711
  Serious: Yes (Other)
  Sender: FDA-Public Use
  Company Number: US-ASTELLAS-2018US018731

PATIENT
  Sex: Male

DRUGS (1)
  1. XTANDI [Suspect]
     Active Substance: ENZALUTAMIDE
     Indication: PROSTATE CANCER
     Route: 048

REACTIONS (6)
  - Blood urine present [Unknown]
  - Weight decreased [Unknown]
  - Fall [Unknown]
  - Muscle strain [Unknown]
  - Urinary bladder rupture [Unknown]
  - Vomiting [Unknown]

NARRATIVE: CASE EVENT DATE: 2017
